FAERS Safety Report 10046078 (Version 1)
Quarter: 2014Q1

REPORT INFORMATION
  Report Type: Spontaneous
  Country: TW (occurrence: TW)
  Receive Date: 20140331
  Receipt Date: 20140331
  Transmission Date: 20141002
  Serious: Yes (Other)
  Sender: FDA-Public Use
  Company Number: TW-ROCHE-1371443

PATIENT
  Age: 56 Year
  Sex: Female

DRUGS (20)
  1. HERCEPTIN [Suspect]
     Indication: BREAST CANCER
     Route: 065
     Dates: start: 200912
  2. HERCEPTIN [Suspect]
     Route: 065
     Dates: start: 201005
  3. HERCEPTIN [Suspect]
     Route: 065
     Dates: start: 201209
  4. TAXOTERE [Concomitant]
     Indication: BREAST CANCER
     Route: 065
     Dates: start: 200912
  5. TAXOTERE [Concomitant]
     Route: 065
     Dates: start: 201103
  6. CISPLATIN [Concomitant]
     Indication: BREAST CANCER
     Route: 065
     Dates: start: 200912
  7. CISPLATIN [Concomitant]
     Route: 065
     Dates: start: 201103
  8. NAVELBINE [Concomitant]
     Route: 065
     Dates: start: 201006
  9. LEUCOVORIN [Concomitant]
     Dosage: HIGH DOSE
     Route: 065
     Dates: start: 201008
  10. FLUOROURACIL [Concomitant]
  11. LAPATINIB [Concomitant]
     Dosage: 4 CYCLES
     Route: 065
     Dates: start: 201009
  12. LAPATINIB [Concomitant]
     Route: 065
     Dates: start: 201209
  13. XELODA [Concomitant]
     Dosage: 4 CYCLES
     Route: 065
     Dates: start: 201009
  14. ADRIAMYCIN [Concomitant]
     Route: 065
     Dates: start: 201103
  15. CYCLOPHOSPHAMIDE [Concomitant]
     Route: 065
     Dates: start: 201103
  16. MITOMYCIN C [Concomitant]
     Route: 065
     Dates: start: 201103
  17. VINBLASTINE [Concomitant]
     Route: 065
     Dates: start: 201103
  18. TRASTUZUMAB EMTANSINE [Concomitant]
     Dosage: 9 CYCLES
     Route: 065
     Dates: start: 201308, end: 201402
  19. PACLITAXEL [Concomitant]
     Route: 065
     Dates: start: 201103
  20. GEMCITABINE [Concomitant]
     Route: 065
     Dates: start: 201103

REACTIONS (1)
  - Disease progression [Unknown]
